FAERS Safety Report 5564071-1 (Version None)
Quarter: 2007Q4

REPORT INFORMATION
  Report Type: 
  Country: None (occurrence: None)
  Receive Date: 20071217
  Receipt Date: 20071205
  Transmission Date: 20080405
  Serious: Yes (Disabling, Other)
  Sender: FDA-Public Use
  Company Number: US-PFIZER INC-2007067581

PATIENT
  Sex: Female
  Weight: 90.7 kg

DRUGS (6)
  1. CHANTIX [Suspect]
     Indication: SMOKING CESSATION THERAPY
     Dates: start: 20070801, end: 20070802
  2. ALBUTEROL [Concomitant]
  3. ADVAIR DISKUS 100/50 [Concomitant]
  4. NAPROXEN [Concomitant]
  5. IBUPROFEN [Concomitant]
  6. TYLENOL [Concomitant]

REACTIONS (9)
  - ACTIVITIES OF DAILY LIVING IMPAIRED [None]
  - AFFECTIVE DISORDER [None]
  - AGGRESSION [None]
  - DEPRESSION [None]
  - EUPHORIC MOOD [None]
  - ILL-DEFINED DISORDER [None]
  - MEDICATION ERROR [None]
  - NERVOUS SYSTEM DISORDER [None]
  - STRESS [None]
